FAERS Safety Report 6764516-5 (Version None)
Quarter: 2010Q2

REPORT INFORMATION
  Report Type: 
  Country: None (occurrence: None)
  Receive Date: 20100609
  Receipt Date: 20100422
  Transmission Date: 20101027
  Serious: No
  Sender: FDA-Public Use
  Company Number: 2010009717

PATIENT
  Age: 11 Year
  Sex: Male
  Weight: 57.6068 kg

DRUGS (1)
  1. CHILDREN'S ZYRTEC ALLERGY [Suspect]
     Indication: OROPHARYNGEAL PAIN
     Dosage: 1 TEASPOONFUL ONCE DAILY
     Dates: start: 20100420, end: 20100421

REACTIONS (2)
  - OFF LABEL USE [None]
  - SKIN IRRITATION [None]
